FAERS Safety Report 21437063 (Version 1)
Quarter: 2022Q4

REPORT INFORMATION
  Report Type: Spontaneous
  Country: GB (occurrence: GB)
  Receive Date: 20221010
  Receipt Date: 20221010
  Transmission Date: 20230113
  Serious: Yes (Other)
  Sender: FDA-Public Use
  Company Number: GB-BAUSCH-BL-2022-023068

PATIENT
  Age: 37 Year
  Sex: Female

DRUGS (12)
  1. DEXAMETHASONE [Suspect]
     Active Substance: DEXAMETHASONE
     Indication: Maternal therapy to enhance foetal lung maturity
     Route: 030
  2. VITAMIN B12 [Suspect]
     Active Substance: CYANOCOBALAMIN
     Indication: Product used for unknown indication
     Route: 065
  3. OXYGEN [Suspect]
     Active Substance: OXYGEN
     Indication: COVID-19
     Route: 065
  4. OXYGEN [Suspect]
     Active Substance: OXYGEN
     Indication: Oxygen therapy
  5. PREDNISOLONE [Suspect]
     Active Substance: PREDNISOLONE
     Indication: COVID-19 pneumonia
     Route: 065
  6. TOCILIZUMAB [Suspect]
     Active Substance: TOCILIZUMAB
     Indication: COVID-19 pneumonia
     Route: 065
  7. DEXTROSE [Suspect]
     Active Substance: DEXTROSE
     Indication: Metabolic disorder
     Route: 042
  8. SODIUM CHLORIDE [Suspect]
     Active Substance: SODIUM CHLORIDE
     Indication: Metabolic disorder
     Route: 042
  9. SODIUM BICARBONATE [Suspect]
     Active Substance: SODIUM BICARBONATE
     Indication: Metabolic disorder
     Route: 042
  10. INSULIN NOS [Suspect]
     Active Substance: INSULIN NOS
     Indication: Metabolic disorder
     Route: 065
  11. ASCORBIC ACID\VITAMIN B COMPLEX [Suspect]
     Active Substance: ASCORBIC ACID\VITAMIN B COMPLEX
     Indication: Metabolic disorder
     Route: 065
  12. UNSPECIFIED INGREDIENT [Suspect]
     Active Substance: UNSPECIFIED INGREDIENT
     Indication: Thrombosis prophylaxis
     Route: 065

REACTIONS (2)
  - Starvation ketoacidosis [Recovered/Resolved]
  - Maternal exposure during pregnancy [Unknown]
